FAERS Safety Report 8720951 (Version 4)
Quarter: 2013Q1

REPORT INFORMATION
  Report Type: Spontaneous
  Country: US (occurrence: US)
  Receive Date: 20120813
  Receipt Date: 20130122
  Transmission Date: 20140127
  Serious: Yes (Death, Hospitalization)
  Sender: FDA-Public Use
  Company Number: US-B.I. PHARMACEUTICALS,INC./RIDGEFIELD-2012-BP-18720BP

PATIENT
  Age: 62 Year
  Sex: Male

DRUGS (7)
  1. PRADAXA [Suspect]
     Indication: ATRIAL FIBRILLATION
     Dosage: 300 MG
     Route: 048
     Dates: start: 20110725, end: 20110911
  2. ZYRTEC [Concomitant]
  3. LIPITOR [Concomitant]
     Dosage: 20 MG
     Route: 048
  4. ACTOS [Concomitant]
     Dosage: 30 MG
     Route: 048
  5. DEMADEX [Concomitant]
     Dosage: 30 MG
     Route: 048
  6. FERROUS SULFATE [Concomitant]
  7. PROZAC [Concomitant]
     Dosage: 20 MG

REACTIONS (4)
  - Cerebellar haemorrhage [Fatal]
  - Coma [Unknown]
  - Hydrocephalus [Unknown]
  - Acute respiratory failure [Unknown]
